FAERS Safety Report 17317090 (Version 1)
Quarter: 2020Q1

REPORT INFORMATION
  Report Type: Spontaneous
  Country: PL (occurrence: PL)
  Receive Date: 20200124
  Receipt Date: 20200124
  Transmission Date: 20200409
  Serious: Yes (Other)
  Sender: FDA-Public Use
  Company Number: PL-MYLANLABS-2020M1007354

PATIENT
  Age: 80 Year
  Sex: Female

DRUGS (2)
  1. SILDENAFIL. [Suspect]
     Active Substance: SILDENAFIL
     Indication: PULMONARY HYPERTENSION
     Dosage: 25 MILLIGRAM, TID
     Route: 065
  2. TORASEMIDE [Suspect]
     Active Substance: TORSEMIDE
     Indication: PULMONARY HYPERTENSION
     Dosage: 10 MILLIGRAM, DAILY
     Route: 065

REACTIONS (1)
  - Left-to-right cardiac shunt [Recovering/Resolving]
